FAERS Safety Report 21709814 (Version 2)
Quarter: 2023Q1

REPORT INFORMATION
  Report Type: Report from Study
  Country: DE (occurrence: DE)
  Receive Date: 20221210
  Receipt Date: 20230110
  Transmission Date: 20230418
  Serious: Yes (Hospitalization)
  Sender: FDA-Public Use
  Company Number: DE-002147023-PHHY2019DE039237

PATIENT
  Age: 32 Year
  Sex: Female

DRUGS (3)
  1. COSENTYX [Suspect]
     Active Substance: SECUKINUMAB
     Indication: Psoriasis
     Dosage: 300 MG
     Route: 065
     Dates: start: 20170522, end: 20170619
  2. COSENTYX [Suspect]
     Active Substance: SECUKINUMAB
     Dosage: 300 MG
     Route: 065
     Dates: start: 20170620
  3. COSENTYX [Suspect]
     Active Substance: SECUKINUMAB
     Dosage: 300 MG, QMO
     Route: 058
     Dates: start: 20171204

REACTIONS (7)
  - Biliary colic [Recovered/Resolved]
  - Vulvovaginal mycotic infection [Unknown]
  - Vulvovaginal mycotic infection [Recovered/Resolved]
  - Acne [Recovered/Resolved]
  - Glossitis [Recovered/Resolved]
  - Muscle spasms [Recovered/Resolved]
  - Glossitis [Recovered/Resolved]

NARRATIVE: CASE EVENT DATE: 20180309
